FAERS Safety Report 7588073-9 (Version None)
Quarter: 2011Q3

REPORT INFORMATION
  Report Type: 
  Country: None (occurrence: None)
  Receive Date: 20110705
  Receipt Date: 20110629
  Transmission Date: 20111222
  Serious: Yes (Hospitalization, Other)
  Sender: FDA-Public Use
  Company Number: US-PFIZER INC-2010051017

PATIENT
  Sex: Male
  Weight: 92 kg

DRUGS (2)
  1. KEPPRA [Concomitant]
     Indication: CONVULSION
     Dosage: UNK
     Dates: start: 20090101, end: 20090227
  2. DILANTIN-125 [Suspect]
     Indication: CONVULSION
     Dosage: 200 MG, 2X/DAY
     Route: 048
     Dates: start: 20090123, end: 20090227

REACTIONS (1)
  - STEVENS-JOHNSON SYNDROME [None]
